APPROVED DRUG PRODUCT: DAPZURA RT
Active Ingredient: DAPTOMYCIN
Strength: 500MG/VIAL **Federal Register determination that product was not discontinued or withdrawn for safety or effectiveness reasons**
Dosage Form/Route: POWDER;INTRAVENOUS
Application: N213645 | Product #001
Applicant: BAXTER HEALTHCARE CORP
Approved: Jan 25, 2022 | RLD: Yes | RS: No | Type: DISCN

PATENTS:
Patent 11173189 | Expires: Mar 11, 2041